FAERS Safety Report 5160620-6 (Version None)
Quarter: 2006Q4

REPORT INFORMATION
  Report Type: 
  Country: None (occurrence: None)
  Receive Date: 20061121
  Receipt Date: 20061110
  Transmission Date: 20070319
  Serious: Yes (Other)
  Sender: FDA-Public Use
  Company Number: 2005127077

PATIENT
  Age: 85 Year
  Sex: Male
  Weight: 89.8122 kg

DRUGS (11)
  1. LYRICA [Suspect]
     Indication: PAIN
     Dosage: 150 MG (50 MG,3 IN 1 D), ORAL
     Route: 048
     Dates: start: 20060101, end: 20061029
  2. LYRICA [Suspect]
     Indication: POST HERPETIC NEURALGIA
     Dosage: 150 MG (50 MG,3 IN 1 D), ORAL
     Route: 048
     Dates: start: 20060101, end: 20061029
  3. NEURONTIN [Suspect]
     Indication: PAIN
     Dates: end: 20050101
  4. WARFARIN SODIUM [Concomitant]
  5. AMOXICILLIN + CLAVULANATE POTASSIUM [Concomitant]
  6. XANAX [Concomitant]
  7. VALSARTAN [Concomitant]
  8. TAMSULOSIN HCL [Concomitant]
  9. LASIX [Concomitant]
  10. ALPRAZOLAM [Concomitant]
  11. METOPROLOL SUCCINATE [Concomitant]

REACTIONS (12)
  - BALANCE DISORDER [None]
  - DIZZINESS [None]
  - DYSSTASIA [None]
  - EYELID FUNCTION DISORDER [None]
  - FALL [None]
  - FEELING ABNORMAL [None]
  - GAIT DISTURBANCE [None]
  - HEAD INJURY [None]
  - MUSCLE SPASMS [None]
  - MYALGIA [None]
  - PAIN [None]
  - SWELLING [None]
